FAERS Safety Report 4892960-X (Version None)
Quarter: 2006Q1

REPORT INFORMATION
  Report Type: 
  Country: None (occurrence: None)
  Receive Date: 20060126
  Receipt Date: 20060117
  Transmission Date: 20060701
  Serious: Yes (Death, Hospitalization)
  Sender: FDA-Public Use
  Company Number: US-MERCK-0601USA02159

PATIENT
  Age: 61 Year
  Sex: Male
  Weight: 95 kg

DRUGS (17)
  1. VIOXX [Suspect]
     Indication: ARTHRITIS
     Route: 048
     Dates: start: 20010503, end: 20021004
  2. ALTACE [Concomitant]
     Route: 065
  3. AUGMENTIN [Concomitant]
     Route: 065
  4. CEPHALEXIN HYDROCHLORIDE [Concomitant]
     Route: 065
  5. CIPRO [Concomitant]
     Route: 065
  6. CLARITIN-D [Concomitant]
     Route: 065
  7. FLONASE [Concomitant]
     Route: 065
  8. FLUOXETINE [Concomitant]
     Route: 065
  9. IBUPROFEN [Concomitant]
     Route: 065
  10. ACETAMINOPHEN AND OXYCODONE HYDROCHLORIDE [Concomitant]
     Route: 065
  11. PRILOSEC [Concomitant]
     Route: 065
  12. CODEINE PHOSPHATE AND PROMETHAZINE HYDROCHLORIDE [Concomitant]
     Route: 065
  13. ACETAMINOPHEN AND PROPOXYPHENE NAPSYLATE [Concomitant]
     Route: 065
  14. VALTREX [Concomitant]
     Route: 065
  15. VIAGRA [Concomitant]
     Route: 065
  16. ZOCOR [Concomitant]
     Route: 065
  17. ZOVIRAX [Concomitant]
     Route: 065

REACTIONS (9)
  - CEREBROVASCULAR ACCIDENT [None]
  - CHILLS [None]
  - CYTOMEGALOVIRUS INFECTION [None]
  - DEATH [None]
  - DEHYDRATION [None]
  - HYPOTENSION [None]
  - INFECTION [None]
  - PYREXIA [None]
  - SUBCUTANEOUS ABSCESS [None]
